FAERS Safety Report 9718849 (Version 3)
Quarter: 2013Q4

REPORT INFORMATION
  Report Type: Spontaneous
  Country: DE (occurrence: DE)
  Receive Date: 20131127
  Receipt Date: 20131206
  Transmission Date: 20140711
  Serious: Yes (Hospitalization, Other)
  Sender: FDA-Public Use
  Company Number: DE-PFIZER INC-2013336597

PATIENT
  Age: 49 Year
  Sex: Male

DRUGS (11)
  1. RAMIPRIL [Suspect]
     Dosage: 10 MG, DAILY
     Route: 048
     Dates: start: 2010
  2. PANTOZOL [Suspect]
     Dosage: 80 MG, DAILY
     Route: 048
  3. TRILEPTAL [Suspect]
     Dosage: 1200 MG, DAILY
     Route: 048
     Dates: start: 2009
  4. LYRICA [Concomitant]
     Dosage: 150 MG, 1X/DAY
     Dates: start: 2009
  5. NORTRIPTYLINE [Concomitant]
     Dosage: 100 MG, 1X/DAY
     Dates: start: 2010, end: 20130108
  6. BELOC-ZOK [Concomitant]
     Dosage: 95 MG, 1X/DAY
  7. AMLODIPINE [Concomitant]
     Dosage: 5 MG, 1X/DAY
     Dates: start: 2010
  8. ASS [Concomitant]
     Dosage: 100 MG, 1X/DAY
     Dates: start: 2010
  9. NOVALGIN [Concomitant]
     Dosage: 2 G, 1X/DAY
     Dates: start: 2011
  10. PARACETAMOL [Concomitant]
     Dosage: 2 G, 1X/DAY
     Dates: start: 2011
  11. KREON [Concomitant]
     Dosage: 120000 IU, 1X/DAY
     Dates: start: 2011

REACTIONS (14)
  - Hyponatraemia [Not Recovered/Not Resolved]
  - Chest pain [Unknown]
  - Road traffic accident [Unknown]
  - Depression [Unknown]
  - Renal failure [Unknown]
  - Multi-organ failure [Unknown]
  - Pancreatitis [Unknown]
  - Sepsis [Unknown]
  - Acute respiratory distress syndrome [Unknown]
  - Pneumonia [Unknown]
  - Delirium [Unknown]
  - Grand mal convulsion [Unknown]
  - Gamma-glutamyltransferase increased [Unknown]
  - Headache [Unknown]
